FAERS Safety Report 20688213 (Version 1)
Quarter: 2022Q2

REPORT INFORMATION
  Report Type: Spontaneous
  Country: DK (occurrence: DK)
  Receive Date: 20220408
  Receipt Date: 20220408
  Transmission Date: 20220721
  Serious: Yes (Disabling)
  Sender: FDA-Public Use
  Company Number: None

PATIENT
  Age: 60 Year
  Sex: Female

DRUGS (1)
  1. PREDNISOLONE [Suspect]
     Active Substance: PREDNISOLONE
     Indication: Myalgia
     Dosage: STRENGTH: UNKNOWN, DOSE: BEGAN PLANNED GRADUAL REDUCTION MAY2019, 15 MG, FREQUENCY TIME- 1 DAY, DURA
     Dates: start: 20190327, end: 20200212

REACTIONS (6)
  - Vision blurred [Recovering/Resolving]
  - Dyschromatopsia [Not Recovered/Not Resolved]
  - Oral mucosal erythema [Recovered/Resolved]
  - Central serous chorioretinopathy [Recovered/Resolved with Sequelae]
  - Gingivitis [Recovered/Resolved]
  - Metamorphopsia [Not Recovered/Not Resolved]

NARRATIVE: CASE EVENT DATE: 20190101
